FAERS Safety Report 7217899-6 (Version None)
Quarter: 2011Q1

REPORT INFORMATION
  Report Type: 
  Country: None (occurrence: None)
  Receive Date: 20110110
  Receipt Date: 20101229
  Transmission Date: 20110831
  Serious: Yes (Hospitalization, Other)
  Sender: FDA-Public Use
  Company Number: US-ELI_LILLY_AND_COMPANY-US201006002506

PATIENT
  Sex: Female
  Weight: 60.317 kg

DRUGS (29)
  1. FORTEO [Suspect]
     Dosage: 20 UG, DAILY (1/D)
     Route: 065
     Dates: start: 20090916
  2. SYNTHROID [Concomitant]
     Dosage: 88 UG, UNK
  3. OMEPRAZOLE [Concomitant]
     Indication: REFLUX GASTRITIS
     Dosage: 20 MG, 2/D
     Route: 065
  4. ZYRTEC [Concomitant]
     Indication: HYPERSENSITIVITY
     Dosage: 10 MG, EACH EVENING
     Route: 065
  5. MELATONIN [Concomitant]
     Indication: FEELING OF RELAXATION
     Dosage: 3 MG, HALF A TABLET
     Route: 065
  6. FLOVENT [Concomitant]
     Indication: ASTHMA
     Dosage: 110 UG, 2/D
     Route: 055
  7. CALCIUM [Concomitant]
     Dosage: UNK, 2/D
  8. VITAMIN D [Concomitant]
  9. FORTEO [Suspect]
     Indication: OSTEOPOROSIS
     Dosage: 20 UG, DAILY (1/D)
     Route: 065
     Dates: start: 20090916
  10. TYLENOL (CAPLET) [Concomitant]
     Dosage: 2 D/F, DAILY (1/D)
  11. VITAMIN E [Concomitant]
     Dosage: 400 UNITS, UNKNOWN
     Route: 065
  12. CLONIDINE [Concomitant]
     Indication: BLOOD PRESSURE
     Dosage: 0.2 MG, UNKNOWN
     Route: 065
  13. COQ10 [Concomitant]
     Dosage: 30 MG, DAILY (1/D)
  14. MULTIVITAMIN AND MINERAL [Concomitant]
  15. VITAMIN B COMPLEX [Concomitant]
     Dosage: UNK, DAILY (1/D)
     Route: 065
  16. XALATAN [Concomitant]
     Indication: GLAUCOMA
     Dosage: 0.005 %, ONE DROP IN ACH EYE
     Route: 065
  17. THYROID [Concomitant]
     Dosage: 88 UG, UNK
  18. CALCIUM WITH VITAMIN D [Concomitant]
  19. ASCORBIC ACID [Concomitant]
     Dosage: 500
     Route: 065
  20. NASONEX [Concomitant]
     Indication: HYPERSENSITIVITY
     Dosage: 50 UG, UNKNOWN
     Route: 065
  21. VENTOLIN                                /SCH/ [Concomitant]
     Route: 065
  22. METAMUCIL-2 [Concomitant]
     Indication: ABDOMINAL DISCOMFORT
  23. MAGNESIUM [Concomitant]
     Dosage: 0.5 D/F, UNK
  24. DIOVAN [Concomitant]
     Indication: BLOOD PRESSURE
     Dosage: 240 MG, 160 MG IN MORNING AND 80 MG AT NIGHT
     Route: 065
  25. DIOVAN [Concomitant]
     Dosage: 240 MG, DAILY (1/D)
  26. LOVAZA [Concomitant]
     Dosage: 1000 MG, DAILY (1/D)
  27. LORTAB [Concomitant]
     Dosage: 5 MG/500MG
     Route: 065
  28. THYROID [Concomitant]
     Dosage: 75 UG, UNK
  29. CALCIUM CITRATE WITH VITAMIN D [Concomitant]
     Dosage: 600 MG, UNKNOWN
     Route: 065

REACTIONS (19)
  - FALL [None]
  - INJECTION SITE PAIN [None]
  - LIGAMENT RUPTURE [None]
  - FATIGUE [None]
  - PAIN IN EXTREMITY [None]
  - MALAISE [None]
  - ABDOMINAL PAIN UPPER [None]
  - PAIN [None]
  - HEADACHE [None]
  - NAUSEA [None]
  - BACK PAIN [None]
  - BALANCE DISORDER [None]
  - OSTEOARTHRITIS [None]
  - ANKLE OPERATION [None]
  - JOINT INJURY [None]
  - JOINT DISLOCATION [None]
  - INJECTION SITE HAEMATOMA [None]
  - COUGH [None]
  - JOINT SWELLING [None]
